FAERS Safety Report 5137446-2 (Version None)
Quarter: 2006Q4

REPORT INFORMATION
  Report Type: 
  Country: None (occurrence: None)
  Receive Date: 20061030
  Receipt Date: 20061017
  Transmission Date: 20070319
  Serious: Yes (Hospitalization)
  Sender: FDA-Public Use
  Company Number: US-JNJFOC-20061003934

PATIENT
  Sex: Male
  Weight: 78.9 kg

DRUGS (5)
  1. DOXIL [Suspect]
     Indication: T-CELL LYMPHOMA
     Route: 042
  2. METHOTREXATE SODIUM [Suspect]
     Indication: T-CELL LYMPHOMA
     Route: 042
  3. ARAC [Suspect]
     Indication: T-CELL LYMPHOMA
     Route: 042
  4. CYTOXAN [Suspect]
     Indication: T-CELL LYMPHOMA
  5. DEXAMETHASONE [Suspect]
     Indication: T-CELL LYMPHOMA

REACTIONS (18)
  - ACUTE RESPIRATORY FAILURE [None]
  - ALVEOLITIS [None]
  - ARTHRITIS BACTERIAL [None]
  - ATELECTASIS [None]
  - BLOOD ALBUMIN DECREASED [None]
  - BLOOD ALKALINE PHOSPHATASE INCREASED [None]
  - BLOOD UREA DECREASED [None]
  - CARDIAC FAILURE CONGESTIVE [None]
  - NEUTROPENIA [None]
  - PERICARDIAL EFFUSION [None]
  - PLATELET COUNT DECREASED [None]
  - PLEURAL EFFUSION [None]
  - PNEUMONIA [None]
  - PULMONARY OEDEMA [None]
  - RED BLOOD CELL COUNT DECREASED [None]
  - RESTRICTIVE CARDIOMYOPATHY [None]
  - SEPTIC SHOCK [None]
  - SUPRAVENTRICULAR TACHYCARDIA [None]
